FAERS Safety Report 14445806 (Version 2)
Quarter: 2019Q1

REPORT INFORMATION
  Report Type: Spontaneous
  Country: US (occurrence: US)
  Receive Date: 20180126
  Receipt Date: 20190204
  Transmission Date: 20190417
  Serious: No
  Sender: FDA-Public Use
  Company Number: US-ABBVIE-17K-163-1982597-00

PATIENT

DRUGS (1)
  1. HUMIRA [Suspect]
     Active Substance: ADALIMUMAB
     Indication: PRODUCT USED FOR UNKNOWN INDICATION
     Route: 058

REACTIONS (10)
  - Peripheral swelling [Unknown]
  - Dysstasia [Unknown]
  - Fear [Unknown]
  - Loss of personal independence in daily activities [Unknown]
  - Post procedural complication [Unknown]
  - Medical procedure [Unknown]
  - Pain in extremity [Unknown]
  - Carpal tunnel syndrome [Unknown]
  - Nodule [Unknown]
  - Joint lock [Unknown]
